FAERS Safety Report 14929507 (Version 1)
Quarter: 2018Q2

REPORT INFORMATION
  Report Type: Spontaneous
  Country: US (occurrence: US)
  Receive Date: 20180504
  Receipt Date: 20180504
  Transmission Date: 20180711
  Serious: Yes (Death)
  Sender: FDA-Public Use
  Company Number: None

PATIENT
  Age: 36 Year
  Sex: Male
  Weight: 81 kg

DRUGS (5)
  1. INSULIN [Concomitant]
     Active Substance: INSULIN NOS
  2. ASPIRIN. [Concomitant]
     Active Substance: ASPIRIN
  3. NULOJIX [Suspect]
     Active Substance: BELATACEPT
     Indication: RENAL TRANSPLANT
     Route: 042
     Dates: start: 20161019
  4. BACTRIM [Concomitant]
     Active Substance: SULFAMETHOXAZOLE\TRIMETHOPRIM
  5. TACROLIMUS. [Concomitant]
     Active Substance: TACROLIMUS

REACTIONS (6)
  - Acute kidney injury [None]
  - Blastomycosis [None]
  - Pain in extremity [None]
  - Diabetic ketoacidosis [None]
  - Shock [None]
  - Cardiac arrest [None]

NARRATIVE: CASE EVENT DATE: 20180422
